FAERS Safety Report 9924108 (Version 1)
Quarter: 2014Q1

REPORT INFORMATION
  Report Type: Spontaneous
  Country: DE (occurrence: DE)
  Receive Date: 20140226
  Receipt Date: 20140226
  Transmission Date: 20141002
  Serious: Yes (Other)
  Sender: FDA-Public Use
  Company Number: DE-AMGEN-DEUSP2014013394

PATIENT
  Age: 54 Year
  Sex: Female

DRUGS (1)
  1. ENBREL [Suspect]
     Indication: PRODUCT USED FOR UNKNOWN INDICATION
     Dosage: 25 MG, UNK (TAKEN THREE TIMES)
     Route: 065
     Dates: start: 201312

REACTIONS (3)
  - Venous injury [Unknown]
  - Injection site haemorrhage [Unknown]
  - Injection site pain [Unknown]
